FAERS Safety Report 8429678-2 (Version None)
Quarter: 2012Q2

REPORT INFORMATION
  Report Type: 
  Country: None (occurrence: None)
  Receive Date: 20120612
  Receipt Date: 20120606
  Transmission Date: 20120825
  Serious: No
  Sender: FDA-Public Use
  Company Number: US-TEVA-341850USA

PATIENT
  Sex: Female

DRUGS (2)
  1. PROAIR HFA [Suspect]
     Dosage: 2 PUFFS Q 4 HOURS
     Route: 055
  2. CONTRACEPTIVES NOS [Concomitant]

REACTIONS (1)
  - BREATH ALCOHOL TEST POSITIVE [None]
